FAERS Safety Report 9219532 (Version 1)
Quarter: 2013Q2

REPORT INFORMATION
  Report Type: Spontaneous
  Country: US (occurrence: US)
  Receive Date: 20130409
  Receipt Date: 20130409
  Transmission Date: 20140414
  Serious: No
  Sender: FDA-Public Use
  Company Number: US-PFIZER INC-2013108428

PATIENT
  Age: 91 Year
  Sex: Female
  Weight: 91.61 kg

DRUGS (2)
  1. NORVASC [Suspect]
     Indication: HYPERTENSION
     Dosage: 5 MG, DAILY
  2. VALSARTAN [Suspect]
     Indication: HYPERTENSION
     Dosage: 150 MG, DAILY

REACTIONS (1)
  - Drug ineffective [Unknown]
